FAERS Safety Report 10386218 (Version 13)
Quarter: 2015Q2

REPORT INFORMATION
  Report Type: Report from Study
  Country: PL (occurrence: PL)
  Receive Date: 20140814
  Receipt Date: 20150629
  Transmission Date: 20150821
  Serious: Yes (Hospitalization)
  Sender: FDA-Public Use
  Company Number: PHHY2013PL130318

PATIENT
  Sex: Female
  Weight: 52 kg

DRUGS (2)
  1. TIZANIDINE (TIZANIDINE) [Suspect]
     Active Substance: TIZANIDINE
     Indication: MUSCLE SPASTICITY
     Dosage: 4 MG, QD
     Route: 048
     Dates: start: 20120426, end: 20131110
  2. GILENYA [Suspect]
     Active Substance: FINGOLIMOD HYDROCHLORIDE
     Indication: MULTIPLE SCLEROSIS
     Dosage: 0.5 MG, QD
     Route: 048
     Dates: start: 20130616, end: 20131110

REACTIONS (7)
  - Pre-eclampsia [Recovered/Resolved]
  - Premature labour [Unknown]
  - Premature delivery [Unknown]
  - Vaginal infection [Recovered/Resolved]
  - Maternal exposure during pregnancy [Unknown]
  - Vomiting [Unknown]
  - Upper respiratory tract infection [Recovered/Resolved]

NARRATIVE: CASE EVENT DATE: 20131119
